FAERS Safety Report 5955727-7 (Version None)
Quarter: 2008Q4

REPORT INFORMATION
  Report Type: 
  Country: None (occurrence: None)
  Receive Date: 20081117
  Receipt Date: 20081113
  Transmission Date: 20090506
  Serious: Yes (Other)
  Sender: FDA-Public Use
  Company Number: US-ROXANE LABORATORIES, INC.-2008-RO-00224RO

PATIENT
  Age: 44 Year
  Sex: Female

DRUGS (3)
  1. FLUTICASONE PROPIONATE [Suspect]
     Indication: ASTHMA
     Route: 055
  2. SALMETEROL [Suspect]
     Indication: ASTHMA
     Route: 055
  3. STEROID SPAY [Suspect]
     Indication: SINUSITIS
     Route: 045

REACTIONS (1)
  - ALLERGIC GRANULOMATOUS ANGIITIS [None]
